FAERS Safety Report 26112209 (Version 1)
Quarter: 2025Q4

REPORT INFORMATION
  Report Type: Spontaneous
  Country: US (occurrence: US)
  Receive Date: 20251202
  Receipt Date: 20251202
  Transmission Date: 20260117
  Serious: No
  Sender: SPRINGWORKS THERAPEUTIC
  Company Number: US-SPRINGWORKS THERAPEUTICS-SW-003288

PATIENT
  Sex: Male

DRUGS (2)
  1. GOMEKLI [Suspect]
     Active Substance: MIRDAMETINIB
     Indication: Neurofibromatosis
     Dosage: 2 MILLIGRAM, BID
     Dates: start: 202506
  2. ONDANSETRON [Concomitant]
     Active Substance: ONDANSETRON
     Indication: Neurofibromatosis
     Dosage: UNK, QD (^AROUND THE CLOCK^)

REACTIONS (1)
  - Temperature intolerance [Unknown]
